FAERS Safety Report 16338677 (Version 7)
Quarter: 2020Q4

REPORT INFORMATION
  Report Type: Report from Study
  Country: AR (occurrence: AR)
  Receive Date: 20190521
  Receipt Date: 20201001
  Transmission Date: 20210113
  Serious: Yes (Life-Threatening, Hospitalization)
  Sender: FDA-Public Use
  Company Number: AR-JNJFOC-20190523317

PATIENT
  Age: 31 Year
  Sex: Female
  Weight: 116 kg

DRUGS (4)
  1. USTEKINUMAB [Suspect]
     Active Substance: USTEKINUMAB
     Indication: SYSTEMIC LUPUS ERYTHEMATOSUS
     Route: 042
     Dates: start: 20190327
  2. MEPREDNISONE [Concomitant]
     Active Substance: MEPREDNISONE
     Route: 048
     Dates: start: 20190605
  3. HYDROXYCHLOROQUINE [Concomitant]
     Active Substance: HYDROXYCHLOROQUINE
     Route: 048
     Dates: start: 201801
  4. MEPREDNISONE [Concomitant]
     Active Substance: MEPREDNISONE
     Route: 048
     Dates: start: 201801

REACTIONS (1)
  - Pericardial effusion [Recovered/Resolved]

NARRATIVE: CASE EVENT DATE: 20190506
